FAERS Safety Report 18506128 (Version 6)
Quarter: 2021Q1

REPORT INFORMATION
  Report Type: Report from Study
  Country: US (occurrence: US)
  Receive Date: 20201116
  Receipt Date: 20210301
  Transmission Date: 20210419
  Serious: Yes (Death, Hospitalization, Other)
  Sender: FDA-Public Use
  Company Number: US-GILEAD-2020-0499941

PATIENT
  Age: 87 Year
  Sex: Female

DRUGS (2)
  1. ORENITRAM [Concomitant]
     Active Substance: TREPROSTINIL
  2. AMBRISENTAN [Suspect]
     Active Substance: AMBRISENTAN
     Indication: PULMONARY ARTERIAL HYPERTENSION
     Dosage: 10 MG, QD
     Route: 048
     Dates: start: 20200203

REACTIONS (7)
  - Oxygen saturation decreased [Unknown]
  - Diarrhoea [Not Recovered/Not Resolved]
  - COVID-19 [Unknown]
  - Pneumonia [Unknown]
  - Death [Fatal]
  - Abdominal discomfort [Not Recovered/Not Resolved]
  - Nausea [Not Recovered/Not Resolved]

NARRATIVE: CASE EVENT DATE: 20201109
